FAERS Safety Report 4314837-0 (Version None)
Quarter: 2004Q1

REPORT INFORMATION
  Report Type: 
  Country: None (occurrence: None)
  Receive Date: 20040308
  Receipt Date: 20040227
  Transmission Date: 20041129
  Serious: Yes (Death, Hospitalization)
  Sender: FDA-Public Use
  Company Number: K200301407

PATIENT
  Age: 61 Year
  Sex: Male

DRUGS (4)
  1. ALTACE [Suspect]
     Dosage: 1 TABLET, QD, UNK
     Route: 065
     Dates: start: 20020501, end: 20021223
  2. HYDROCHLOROTHIAZIDE (HYDROCHLOROTHIAZIDE) TABLET, 1 TABLET [Suspect]
     Dosage: 1 TABLET, QD, UNK
     Route: 065
     Dates: start: 20020501, end: 20021223
  3. ESOMEPRAZOLE (ESOMEPRAZOLE) 20MG [Suspect]
     Indication: PEPTIC ULCER
     Dosage: 20 MG, QD, UNK
     Route: 065
     Dates: start: 20010101, end: 20021223
  4. ROFECOXIB [Suspect]
     Dosage: 25 MG, QD, UNK
     Route: 065
     Dates: start: 20020501, end: 20021223

REACTIONS (8)
  - ABDOMINAL PAIN [None]
  - CHOLESTASIS [None]
  - DISSEMINATED INTRAVASCULAR COAGULATION [None]
  - HEPATIC FAILURE [None]
  - HEPATIC NECROSIS [None]
  - HEPATOMEGALY [None]
  - HEPATORENAL SYNDROME [None]
  - JAUNDICE [None]
